FAERS Safety Report 26179389 (Version 1)
Quarter: 2025Q4

REPORT INFORMATION
  Report Type: Spontaneous
  Country: US (occurrence: None)
  Receive Date: 20251218
  Receipt Date: 20251218
  Transmission Date: 20260118
  Serious: Yes (Hospitalization)
  Sender: FDA-CTU
  Company Number: None

PATIENT
  Sex: Male

DRUGS (15)
  1. LENALIDOMIDE [Suspect]
     Active Substance: LENALIDOMIDE
  2. CARFILZOMIB [Suspect]
     Active Substance: CARFILZOMIB
  3. POMALYST [Suspect]
     Active Substance: POMALIDOMIDE
  4. DEXAMETHASONE [Suspect]
     Active Substance: DEXAMETHASONE
  5. DARZALEX [Suspect]
     Active Substance: DARATUMUMAB
     Dosage: OTHER FREQUENCY : DAILY FOR 14 DAYS OUT OF A 21 DAY CYCLE TAKE WHOLE WITH WATER ;
  6. ALBUTEROL AER HFA [Concomitant]
  7. ASPIRIN LOW TAB 81 MG EG [Concomitant]
  8. B-COMPLEX/C TAB [Concomitant]
  9. BACTRIM TAB 400-B0MG [Concomitant]
  10. CALCIUM TAB 600MG [Concomitant]
  11. COLACE CAP 100MG [Concomitant]
  12. DARZALEX [Concomitant]
     Active Substance: DARATUMUMAB
  13. DEXAMETHASON TAB 0.75MG [Concomitant]
  14. DEXAMETHASONE [Concomitant]
     Active Substance: DEXAMETHASONE
  15. DICLOFENAC TAB 25MG DR [Concomitant]

REACTIONS (4)
  - Respiratory failure [None]
  - Pneumonia [None]
  - Disease progression [None]
  - Off label use [None]
